FAERS Safety Report 7381208-2 (Version None)
Quarter: 2011Q1

REPORT INFORMATION
  Report Type: 
  Country: None (occurrence: None)
  Receive Date: 20110329
  Receipt Date: 20091226
  Transmission Date: 20110831
  Serious: Yes (Death, Other)
  Sender: FDA-Public Use
  Company Number: US-BAYER-200943420NA

PATIENT
  Sex: Male
  Weight: 2.834 kg

DRUGS (2)
  1. TRASYLOL [Suspect]
     Indication: CARDIAC OPERATION
     Route: 042
     Dates: start: 20051109
  2. TRASYLOL [Suspect]
     Indication: ANOMALOUS PULMONARY VENOUS CONNECTION

REACTIONS (11)
  - DEPRESSION [None]
  - RENAL FAILURE CHRONIC [None]
  - ANXIETY [None]
  - FEAR [None]
  - PAIN [None]
  - DEATH [None]
  - INJURY [None]
  - RENAL FAILURE [None]
  - POSTOPERATIVE RENAL FAILURE [None]
  - ANHEDONIA [None]
  - UNEVALUABLE EVENT [None]
